FAERS Safety Report 18079368 (Version 1)
Quarter: 2020Q3

REPORT INFORMATION
  Report Type: Spontaneous
  Country: US (occurrence: US)
  Receive Date: 20200727
  Receipt Date: 20200727
  Transmission Date: 20201103
  Serious: Yes (Hospitalization)
  Sender: FDA-Public Use
  Company Number: None

PATIENT
  Age: 12 Month
  Sex: Male

DRUGS (2)
  1. SILDENAFIL SUS 10MG/ML [Suspect]
     Active Substance: SILDENAFIL
     Route: 048
     Dates: start: 202001
  2. TRACLEER [Concomitant]
     Active Substance: BOSENTAN

REACTIONS (1)
  - Pulmonary oedema [None]

NARRATIVE: CASE EVENT DATE: 20200713
